FAERS Safety Report 5766130-7 (Version None)
Quarter: 2008Q2

REPORT INFORMATION
  Report Type: 
  Country: None (occurrence: None)
  Receive Date: 20080611
  Receipt Date: 20080605
  Transmission Date: 20081010
  Serious: Yes (Hospitalization)
  Sender: FDA-Public Use
  Company Number: JP-PFIZER INC-2008048208

PATIENT
  Age: 45 Year
  Sex: Female

DRUGS (4)
  1. ALDACTONE [Suspect]
     Dosage: DAILY DOSE:25MG
     Route: 048
  2. INVESTIGATIONAL DRUG [Suspect]
     Dosage: DAILY DOSE:15MG
     Route: 048
     Dates: start: 20080426, end: 20080502
  3. LASIX [Suspect]
     Dosage: DAILY DOSE:80MG
     Route: 048
  4. NU LOTAN [Concomitant]

REACTIONS (1)
  - INTRACARDIAC THROMBUS [None]
